FAERS Safety Report 7685809-3 (Version None)
Quarter: 2011Q3

REPORT INFORMATION
  Report Type: 
  Country: None (occurrence: None)
  Receive Date: 20110815
  Receipt Date: 20110815
  Transmission Date: 20111222
  Serious: No
  Sender: FDA-Public Use
  Company Number: None

PATIENT
  Age: 47 Year
  Sex: Female
  Weight: 58.059 kg

DRUGS (1)
  1. LEVAQUIN [Suspect]
     Indication: INFECTION PROPHYLAXIS
     Dates: start: 20081019, end: 20081102

REACTIONS (9)
  - PRURITUS [None]
  - ROTATOR CUFF SYNDROME [None]
  - TENDONITIS [None]
  - RASH [None]
  - PAIN [None]
  - ARTHRALGIA [None]
  - SWELLING [None]
  - MUSCULOSKELETAL PAIN [None]
  - BURSITIS [None]
